FAERS Safety Report 7634535-5 (Version None)
Quarter: 2011Q3

REPORT INFORMATION
  Report Type: 
  Country: None (occurrence: None)
  Receive Date: 20110725
  Receipt Date: 20110712
  Transmission Date: 20111222
  Serious: Yes (Hospitalization, Other)
  Sender: FDA-Public Use
  Company Number: US-ELI_LILLY_AND_COMPANY-US201105000830

PATIENT
  Sex: Female

DRUGS (14)
  1. METOPROLOL TARTRATE [Concomitant]
     Dosage: 50 MG, QD
     Route: 065
  2. FORTEO [Suspect]
     Dosage: 20 UG, QD
     Route: 065
     Dates: start: 20110501
  3. FORTEO [Suspect]
     Dosage: 20 UG, QD
     Route: 065
  4. LIPITOR [Concomitant]
     Dosage: 10 MG, QD
     Route: 065
  5. ASPIRIN [Concomitant]
     Dosage: 81 MG, QD
     Route: 065
  6. FERROUS SULFATE TAB [Concomitant]
     Dosage: 27 MG, QD
     Route: 065
  7. LOVAZA [Concomitant]
     Dosage: 1200 MG, QD
     Route: 065
  8. RAMIPRIL [Concomitant]
     Dosage: 5 MG, QD
     Route: 065
  9. PLAVIX [Concomitant]
     Dosage: 75 MG, QD
     Route: 065
  10. FORTEO [Suspect]
     Indication: OSTEOPOROSIS
     Dosage: 20 UG, QD
     Route: 065
     Dates: start: 20110427, end: 20110427
  11. RESTASIS [Concomitant]
     Indication: EYE DISORDER
     Dosage: UNK, UNKNOWN
     Route: 065
  12. CENTRUM SILVER [Concomitant]
     Dosage: UNK, QD
     Route: 065
  13. CALCIUM WITH VITAMIN D [Concomitant]
     Dosage: UNK UNK, BID
     Route: 065
  14. BIOTIN [Concomitant]
     Dosage: 1000 MG, QD
     Route: 065

REACTIONS (8)
  - TOOTH FRACTURE [None]
  - WEIGHT DECREASED [None]
  - INJECTION SITE HAEMATOMA [None]
  - BACK PAIN [None]
  - CONFUSIONAL STATE [None]
  - MEMORY IMPAIRMENT [None]
  - MYOCARDIAL INFARCTION [None]
  - HYPOAESTHESIA [None]
